FAERS Safety Report 10044482 (Version 1)
Quarter: 2014Q1

REPORT INFORMATION
  Report Type: Spontaneous
  Country: BR (occurrence: BR)
  Receive Date: 20140328
  Receipt Date: 20140328
  Transmission Date: 20141002
  Serious: Yes (Hospitalization)
  Sender: FDA-Public Use
  Company Number: BR-ASTRAZENECA-2014SE20292

PATIENT
  Age: 52 Year
  Sex: Male
  Weight: 82 kg

DRUGS (4)
  1. ATACAND HCT [Suspect]
     Indication: HYPERTENSION
     Dosage: 16/12.5 MG, DAILY
     Route: 048
     Dates: start: 2011
  2. SELOZOK [Suspect]
     Indication: MYOCARDIAL INFARCTION
     Route: 048
     Dates: start: 201403
  3. ATORVASTATIN [Concomitant]
     Indication: BLOOD CHOLESTEROL ABNORMAL
     Route: 048
     Dates: start: 2011, end: 201403
  4. ATORVASTATIN [Concomitant]
     Indication: BLOOD CHOLESTEROL ABNORMAL
     Route: 048

REACTIONS (2)
  - Myocardial infarction [Recovered/Resolved]
  - Off label use [Not Recovered/Not Resolved]
